FAERS Safety Report 5130848-X (Version None)
Quarter: 2006Q4

REPORT INFORMATION
  Report Type: 
  Country: None (occurrence: None)
  Receive Date: 20061017
  Receipt Date: 20061017
  Transmission Date: 20070319
  Serious: Yes (Hospitalization)
  Sender: FDA-Public Use
  Company Number: None

PATIENT
  Age: 66 Year
  Sex: Male
  Weight: 85.5 kg

DRUGS (1)
  1. STAVUDINE [Suspect]
     Indication: HIV INFECTION
     Dosage: 40MG BID PO
     Route: 048
     Dates: start: 20011121, end: 20060510

REACTIONS (18)
  - ABDOMINAL PAIN [None]
  - ABDOMINAL PAIN UPPER [None]
  - ABSCESS [None]
  - BLOOD PRESSURE INCREASED [None]
  - CHILLS [None]
  - CONDITION AGGRAVATED [None]
  - COUGH [None]
  - DECREASED APPETITE [None]
  - DIARRHOEA [None]
  - FATIGUE [None]
  - HEPATIC FAILURE [None]
  - HEPATOTOXICITY [None]
  - INSOMNIA [None]
  - LIVER DISORDER [None]
  - LUNG DISORDER [None]
  - PYREXIA [None]
  - RESPIRATORY TRACT INFECTION [None]
  - VIRAL INFECTION [None]
